FAERS Safety Report 6381599-5 (Version None)
Quarter: 2009Q3

REPORT INFORMATION
  Report Type: 
  Country: None (occurrence: None)
  Receive Date: 20090925
  Receipt Date: 20090918
  Transmission Date: 20100115
  Serious: Yes (Disabling, Other)
  Sender: FDA-Public Use
  Company Number: 09US002875

PATIENT
  Age: 51 Year
  Sex: Female

DRUGS (1)
  1. TRIPLE ANTIBIOTIC OINTMENT [Suspect]
     Indication: SUNBURN
     Dosage: TWO APPLICATIONS, TOPICAL
     Route: 061
     Dates: start: 20050626, end: 20050626

REACTIONS (12)
  - ABASIA [None]
  - APPLICATION SITE BURN [None]
  - APPLICATION SITE PAIN [None]
  - APPLICATION SITE SWELLING [None]
  - BLISTER [None]
  - BURN INFECTION [None]
  - CAPILLARY DISORDER [None]
  - CELLULITIS [None]
  - ERYTHEMA [None]
  - IMPAIRED HEALING [None]
  - PRODUCT QUALITY ISSUE [None]
  - SCAR [None]
